FAERS Safety Report 8814755 (Version 4)
Quarter: 2012Q4

REPORT INFORMATION
  Report Type: 
  Country: US (occurrence: US)
  Receive Date: 20120928
  Receipt Date: 20121119
  Transmission Date: 20130627
  Serious: Yes (Other)
  Sender: FDA-Public Use
  Company Number: US-GILEAD-2012-0061869

PATIENT
  Sex: Male

DRUGS (2)
  1. LETAIRIS [Suspect]
     Indication: PULMONARY ARTERIAL HYPERTENSION
     Dosage: 5 mg, UNK
     Route: 048
     Dates: start: 20120802
  2. TRACLEER [Suspect]

REACTIONS (4)
  - Pneumonia [Unknown]
  - Weight increased [Unknown]
  - Dyspnoea [Unknown]
  - Oedema [Unknown]
